FAERS Safety Report 5503406-2 (Version None)
Quarter: 2007Q4

REPORT INFORMATION
  Report Type: 
  Country: None (occurrence: None)
  Receive Date: 20071031
  Receipt Date: 20071019
  Transmission Date: 20080405
  Serious: Yes (Other)
  Sender: FDA-Public Use
  Company Number: IE-PFIZER INC-2007088693

PATIENT
  Sex: Male

DRUGS (1)
  1. VFEND [Suspect]
     Dates: start: 20071017, end: 20071018

REACTIONS (2)
  - HEARING IMPAIRED [None]
  - VISUAL DISTURBANCE [None]
